FAERS Safety Report 21744425 (Version 1)
Quarter: 2022Q4

REPORT INFORMATION
  Report Type: Report from Study
  Country: CH (occurrence: CH)
  Receive Date: 20221218
  Receipt Date: 20221218
  Transmission Date: 20230112
  Serious: Yes (Hospitalization)
  Sender: FDA-Public Use
  Company Number: CH-ABBVIE-4240717

PATIENT
  Age: 80 Year
  Sex: Male

DRUGS (2)
  1. CARBIDOPA\LEVODOPA [Suspect]
     Active Substance: CARBIDOPA\LEVODOPA
     Indication: Parkinson^s disease
     Dosage: MD: 5 ML, CRD: 3.4 ML/H, CRN: 1.7 ML/H, ED: 1 ML
     Dates: start: 20221215
  2. CARBIDOPA\LEVODOPA [Suspect]
     Active Substance: CARBIDOPA\LEVODOPA
     Dosage: MD: 5 ML, CRD: 3.4 ML/H, CRN: 1.7 ML/H, ED: 1 ML
     Dates: start: 20221207, end: 20221215

REACTIONS (5)
  - Pneumonia [Not Recovered/Not Resolved]
  - On and off phenomenon [Recovering/Resolving]
  - Gait disturbance [Recovering/Resolving]
  - Akinesia [Recovering/Resolving]
  - Dyskinesia [Recovering/Resolving]

NARRATIVE: CASE EVENT DATE: 20221201
